FAERS Safety Report 24413609 (Version 1)
Quarter: 2024Q4

REPORT INFORMATION
  Report Type: Other
  Country: SG (occurrence: SG)
  Receive Date: 20241008
  Receipt Date: 20241008
  Transmission Date: 20250115
  Serious: Yes (Life-Threatening)
  Sender: B BRAUN
  Company Number: SG-B.Braun Medical Inc.-2162681

PATIENT
  Age: 50 Year
  Sex: Female

DRUGS (8)
  1. MEROPENEM [Suspect]
     Active Substance: MEROPENEM
     Indication: Sepsis
  2. MEROPENEM [Suspect]
     Active Substance: MEROPENEM
     Indication: Klebsiella infection
  3. PENICILLIN G [Suspect]
     Active Substance: PENICILLIN G
  4. Inotropic support [Concomitant]
  5. Herbal traditional Chinese medicine [Concomitant]
  6. VANCOMYCIN [Suspect]
     Active Substance: VANCOMYCIN
  7. CEFTAZIDIME [Suspect]
     Active Substance: CEFTAZIDIME
  8. CLINDAMYCIN [Suspect]
     Active Substance: CLINDAMYCIN

REACTIONS (1)
  - Drug ineffective [Unknown]
